FAERS Safety Report 10904689 (Version 2)
Quarter: 2016Q1

REPORT INFORMATION
  Report Type: Spontaneous
  Country: JP (occurrence: JP)
  Receive Date: 20150311
  Receipt Date: 20160301
  Transmission Date: 20160525
  Serious: Yes (Death)
  Sender: FDA-Public Use
  Company Number: JP-TEVA-546193ISR

PATIENT
  Age: 82 Year
  Sex: Female
  Weight: 39 kg

DRUGS (11)
  1. OPSO [Concomitant]
     Active Substance: MORPHINE HYDROCHLORIDE
     Indication: BREAKTHROUGH PAIN
     Route: 048
     Dates: start: 20141208, end: 20150101
  2. WARFARIN [Concomitant]
     Active Substance: WARFARIN
     Dosage: 1 DOSAGE FORMS DAILY;
     Route: 048
     Dates: start: 20141106
  3. JANUVIA [Concomitant]
     Active Substance: SITAGLIPTIN PHOSPHATE
     Dosage: 1 DOSAGE FORMS DAILY;
     Route: 048
     Dates: start: 20130926
  4. REBAMIPIDE OD [Concomitant]
     Active Substance: REBAMIPIDE
     Dosage: 4 DOSAGE FORMS DAILY;
     Route: 048
     Dates: start: 20141106
  5. CELECOX [Concomitant]
     Active Substance: CELECOXIB
     Indication: CANCER PAIN
     Dosage: 4 DOSAGE FORMS DAILY;
     Route: 048
     Dates: start: 20141029, end: 20150101
  6. ADOFEED [Concomitant]
     Active Substance: FLURBIPROFEN
     Indication: CANCER PAIN
     Route: 062
     Dates: start: 20141224, end: 20150101
  7. MAGMITT [Concomitant]
     Active Substance: MAGNESIUM OXIDE
     Dosage: 9 DOSAGE FORMS DAILY;
     Route: 048
     Dates: start: 20131103
  8. E-FEN BUCCAL [Suspect]
     Active Substance: FENTANYL CITRATE
     Indication: BREAKTHROUGH PAIN
     Dosage: DAILY: 50-100 MCG
     Route: 002
     Dates: start: 20141218, end: 20141229
  9. E-FEN BUCCAL [Suspect]
     Active Substance: FENTANYL CITRATE
     Dosage: 50 MICROGRAM DAILY;
     Route: 002
     Dates: start: 20141227, end: 20141229
  10. OXYCONTIN [Concomitant]
     Active Substance: OXYCODONE HYDROCHLORIDE
     Indication: CANCER PAIN
     Dosage: 4 DOSAGE FORMS DAILY;
     Route: 048
     Dates: start: 20141208, end: 20150101
  11. CRESTOR [Concomitant]
     Active Substance: ROSUVASTATIN CALCIUM
     Dosage: 1 DOSAGE FORMS DAILY;
     Route: 048
     Dates: start: 20130926

REACTIONS (2)
  - Non-small cell lung cancer [Fatal]
  - Constipation [Recovering/Resolving]

NARRATIVE: CASE EVENT DATE: 20141220
